FAERS Safety Report 14987312 (Version 1)
Quarter: 2018Q2

REPORT INFORMATION
  Report Type: Spontaneous
  Country: FR (occurrence: FR)
  Receive Date: 20180608
  Receipt Date: 20180608
  Transmission Date: 20180711
  Serious: Yes (Hospitalization, Other)
  Sender: FDA-Public Use
  Company Number: FR-SUN PHARMACEUTICAL INDUSTRIES LTD-2018RR-175227

PATIENT
  Age: 77 Year
  Sex: Male
  Weight: 53 kg

DRUGS (6)
  1. FLAGYL [Suspect]
     Active Substance: METRONIDAZOLE\METRONIDAZOLE HYDROCHLORIDE
     Indication: GASTRIC ULCER HELICOBACTER
     Dosage: UNK
     Route: 048
     Dates: start: 20171011, end: 20171017
  2. HEPSERA [Concomitant]
     Active Substance: ADEFOVIR DIPIVOXIL
     Indication: CHRONIC HEPATITIS B
     Dosage: 1 DF, BID
     Route: 048
     Dates: start: 2002
  3. ZEFFIX FILM-COATED TABLET [Concomitant]
     Indication: CHRONIC HEPATITIS B
     Dosage: 1 DF, QD
     Route: 048
     Dates: start: 2000
  4. AMOXICILLINE [Suspect]
     Active Substance: AMOXICILLIN
     Indication: GASTRIC ULCER HELICOBACTER
     Dosage: 2 DF, QD
     Route: 048
     Dates: start: 20171011, end: 20171024
  5. CLARITHROMYCIN. [Suspect]
     Active Substance: CLARITHROMYCIN
     Indication: GASTRIC ULCER HELICOBACTER
     Dosage: UNK
     Route: 048
     Dates: start: 20171011, end: 20171024
  6. PANTOPRAZOLE GASTRO-RESISTANT TABLET [Suspect]
     Active Substance: PANTOPRAZOLE SODIUM
     Indication: GASTRIC ULCER HELICOBACTER
     Dosage: 1 DF, QD
     Route: 048
     Dates: start: 20171011

REACTIONS (5)
  - Syncope [Recovered/Resolved]
  - Amnesia [Recovered/Resolved]
  - Epilepsy [Recovered/Resolved]
  - Seizure [Recovered/Resolved]
  - Insomnia [Unknown]

NARRATIVE: CASE EVENT DATE: 20171017
